FAERS Safety Report 7289340-9 (Version None)
Quarter: 2011Q1

REPORT INFORMATION
  Report Type: 
  Country: None (occurrence: None)
  Receive Date: 20110211
  Receipt Date: 20110211
  Transmission Date: 20110831
  Serious: Yes (Other)
  Sender: FDA-Public Use
  Company Number: US-PFIZER INC-2011023514

PATIENT
  Sex: Female
  Weight: 69 kg

DRUGS (1)
  1. LIPITOR [Suspect]
     Indication: BLOOD CHOLESTEROL INCREASED
     Dosage: 40 MG, DAILY
     Route: 048
     Dates: start: 20060101

REACTIONS (4)
  - HEART RATE IRREGULAR [None]
  - BLOOD CHOLESTEROL INCREASED [None]
  - AMNESIA [None]
  - HEADACHE [None]
